FAERS Safety Report 23264514 (Version 1)
Quarter: 2023Q4

REPORT INFORMATION
  Report Type: Spontaneous
  Country: IT (occurrence: IT)
  Receive Date: 20231205
  Receipt Date: 20231205
  Transmission Date: 20240110
  Serious: Yes (Other)
  Sender: FDA-Public Use
  Company Number: IT-CELLTRION HEALTHCARE HUNGARY KFT-2023IT006624

PATIENT
  Age: 56 Year
  Sex: Female

DRUGS (1)
  1. ADALIMUMAB [Suspect]
     Active Substance: ADALIMUMAB\ISOPROPYL ALCOHOL
     Indication: Psoriatic arthropathy
     Dosage: UNK (12 WEEKS)
     Route: 065

REACTIONS (7)
  - Paradoxical psoriasis [Recovered/Resolved]
  - Psoriatic arthropathy [Recovering/Resolving]
  - Alopecia [Recovered/Resolved]
  - Psoriasis [Recovered/Resolved]
  - Drug ineffective [Unknown]
  - Non-scarring alopecia [Recovered/Resolved]
  - Arthralgia [Recovered/Resolved]
